FAERS Safety Report 7472657-2 (Version None)
Quarter: 2011Q2

REPORT INFORMATION
  Report Type: 
  Country: None (occurrence: None)
  Receive Date: 20110511
  Receipt Date: 20110504
  Transmission Date: 20111010
  Serious: Yes (Other)
  Sender: FDA-Public Use
  Company Number: CH-SANOFI-AVENTIS-2011SA027490

PATIENT
  Age: 58 Year
  Sex: Male
  Weight: 101 kg

DRUGS (4)
  1. MULTAQ [Suspect]
     Indication: ATRIAL FIBRILLATION
     Route: 048
     Dates: start: 20110325, end: 20110419
  2. MULTAQ [Suspect]
     Indication: ATRIAL FLUTTER
     Route: 048
     Dates: start: 20110325, end: 20110419
  3. ASPIRIN [Suspect]
     Indication: ATRIAL FLUTTER
     Route: 048
     Dates: start: 20110301
  4. ASPIRIN [Suspect]
     Indication: ATRIAL FIBRILLATION
     Route: 048
     Dates: start: 20110301

REACTIONS (1)
  - SPONTANEOUS HAEMATOMA [None]
